FAERS Safety Report 5442013-7 (Version None)
Quarter: 2007Q3

REPORT INFORMATION
  Report Type: 
  Country: None (occurrence: None)
  Receive Date: 20070904
  Receipt Date: 20070827
  Transmission Date: 20080115
  Serious: Yes (Other)
  Sender: FDA-Public Use
  Company Number: US-ELI_LILLY_AND_COMPANY-US200708000640

PATIENT
  Age: 63 Year
  Sex: Male
  Weight: 104 kg

DRUGS (5)
  1. SOMATROPIN [Suspect]
     Indication: GROWTH HORMONE DEFICIENCY
     Dosage: 0.4 MG, DAILY (1/D)
     Route: 058
     Dates: start: 20010701
  2. LEVOXYL [Concomitant]
  3. ATENOLOL [Concomitant]
  4. ANDRODERM [Concomitant]
  5. LESCOL [Concomitant]

REACTIONS (1)
  - PROSTATE CANCER [None]
